FAERS Safety Report 4532031-5 (Version None)
Quarter: 2004Q4

REPORT INFORMATION
  Report Type: 
  Country: None (occurrence: None)
  Receive Date: 20041220
  Receipt Date: 20041005
  Transmission Date: 20050328
  Serious: Yes (Hospitalization)
  Sender: FDA-Public Use
  Company Number: FR-GLAXOSMITHKLINE-B0347114A

PATIENT
  Age: 30 Year
  Sex: Male
  Weight: 72 kg

DRUGS (9)
  1. AUGMENTIN '125' [Suspect]
     Indication: ABSCESS
     Dosage: 1G THREE TIMES PER DAY
     Route: 042
     Dates: start: 20040817, end: 20040906
  2. CIFLOX [Suspect]
     Indication: ABSCESS
     Dosage: 200MG TWICE PER DAY
     Route: 042
     Dates: start: 20040817, end: 20040906
  3. OMEPRAZOLE [Suspect]
     Dosage: 40MG PER DAY
     Route: 042
     Dates: end: 20040906
  4. HYDROCORTISONE [Concomitant]
     Dosage: 40MG UNKNOWN
     Route: 042
  5. LOVENOX [Concomitant]
     Route: 058
  6. KABIVEN [Concomitant]
     Indication: PARENTERAL NUTRITION
     Route: 042
     Dates: start: 20040801
  7. CERNEVIT-12 [Concomitant]
     Indication: PARENTERAL NUTRITION
  8. NONAN [Concomitant]
     Indication: PARENTERAL NUTRITION
  9. VIT B1 [Concomitant]

REACTIONS (1)
  - NEUTROPENIA [None]
